FAERS Safety Report 4696131-1 (Version None)
Quarter: 2005Q2

REPORT INFORMATION
  Report Type: 
  Country: None (occurrence: None)
  Receive Date: 20050620
  Receipt Date: 20050606
  Transmission Date: 20051028
  Serious: Yes (Hospitalization, Other)
  Sender: FDA-Public Use
  Company Number: 2005068344

PATIENT
  Age: 35 Year
  Sex: Male
  Weight: 107 kg

DRUGS (10)
  1. CELEBREX [Suspect]
     Indication: OEDEMA PERIPHERAL
     Dates: start: 20040101
  2. CELEBREX [Suspect]
     Indication: PAIN
     Dates: start: 20040101
  3. PARECOXIB SODIUM [Suspect]
     Indication: BACK PAIN
     Dosage: 40 MG (40 MG, 1 IN 1D ), INTRAMUSCULAR
     Route: 030
     Dates: start: 20050425, end: 20050425
  4. NAPROXEN SODIUM [Suspect]
     Indication: ILL-DEFINED DISORDER
     Dosage: (2  IN 1 D), ORAL
     Route: 048
     Dates: start: 20050425, end: 20050425
  5. ANALGESICS (ANALGESICS) [Concomitant]
  6. NAPROXEN [Concomitant]
  7. ANTIHYPERTENSIVES (ANTIHYPERTENSIVES) [Concomitant]
  8. MYONAL (EPERISONE HYDROCHLORIDE) [Concomitant]
  9. ALL OTHER THERAPEUTIC PRODUCTS (ALL OTHER THERAPEUTIC PRODUCTS) [Concomitant]
  10. RABEPRAZOLE SODIUM [Concomitant]

REACTIONS (11)
  - BLOOD PRESSURE INCREASED [None]
  - CARDIOVASCULAR DISORDER [None]
  - FACE OEDEMA [None]
  - HAND FRACTURE [None]
  - HEADACHE [None]
  - HEMIPARESIS [None]
  - HYPERSENSITIVITY [None]
  - LIP DISORDER [None]
  - SWELLING FACE [None]
  - TRANSIENT ISCHAEMIC ATTACK [None]
  - URTICARIA [None]
